FAERS Safety Report 7619906-5 (Version None)
Quarter: 2011Q3

REPORT INFORMATION
  Report Type: 
  Country: None (occurrence: None)
  Receive Date: 20110719
  Receipt Date: 20110711
  Transmission Date: 20111222
  Serious: Yes (Hospitalization, Other)
  Sender: FDA-Public Use
  Company Number: US-ELI_LILLY_AND_COMPANY-US201008003921

PATIENT
  Sex: Female

DRUGS (11)
  1. LABETALOL HCL [Concomitant]
     Indication: HYPERTENSION
     Dosage: UNK
     Route: 048
  2. AMLODIPINE [Concomitant]
     Indication: HYPERTENSION
     Dosage: UNK
     Route: 048
  3. LANTUS [Concomitant]
     Dosage: UNK
  4. MAALOX [Concomitant]
     Dosage: UNK
  5. NOVOLOG [Concomitant]
  6. LIPITOR [Concomitant]
  7. SIMVASTATIN [Concomitant]
  8. BYETTA [Suspect]
     Indication: TYPE 2 DIABETES MELLITUS
     Dosage: UNK
     Dates: start: 20080123
  9. FEXOFENADINE [Concomitant]
  10. ZETIA [Concomitant]
  11. DIOVAN [Concomitant]

REACTIONS (5)
  - GALLBLADDER CANCER [None]
  - OFF LABEL USE [None]
  - PANCREATIC NEOPLASM [None]
  - RENAL CELL CARCINOMA [None]
  - PANCREATITIS ACUTE [None]
